FAERS Safety Report 6620680-X (Version None)
Quarter: 2010Q1

REPORT INFORMATION
  Report Type: 
  Country: None (occurrence: None)
  Receive Date: 20100309
  Receipt Date: 20100304
  Transmission Date: 20100710
  Serious: Yes (Hospitalization)
  Sender: FDA-Public Use
  Company Number: US-RB-026524-09

PATIENT
  Sex: Female

DRUGS (4)
  1. SUBOXONE [Suspect]
     Route: 060
     Dates: start: 20090601
  2. SUBOXONE [Suspect]
     Route: 060
     Dates: start: 20080101, end: 20090601
  3. NAPROXEN [Suspect]
     Indication: PAIN
     Dosage: UNKNOWN DOSING DETAILS
     Route: 048
  4. IBUPROFEN [Suspect]
     Indication: PAIN
     Dosage: UNKNOWN DOSING DETAILS
     Route: 048

REACTIONS (1)
  - PERFORATED ULCER [None]
